FAERS Safety Report 5296710-7 (Version None)
Quarter: 2007Q2

REPORT INFORMATION
  Report Type: 
  Country: None (occurrence: None)
  Receive Date: 20070413
  Receipt Date: 20070403
  Transmission Date: 20071010
  Serious: Yes (Hospitalization, Other)
  Sender: FDA-Public Use
  Company Number: GB-PFIZER INC-2007023098

PATIENT
  Age: 37 Year
  Sex: Female
  Weight: 82 kg

DRUGS (2)
  1. SYNAREL [Suspect]
     Indication: UTERINE LEIOMYOMA
  2. SERTRALINE [Concomitant]

REACTIONS (2)
  - HAEMOGLOBIN DECREASED [None]
  - MENORRHAGIA [None]
